FAERS Safety Report 7599967-2 (Version None)
Quarter: 2011Q3

REPORT INFORMATION
  Report Type: 
  Country: None (occurrence: None)
  Receive Date: 20110706
  Receipt Date: 20110706
  Transmission Date: 20111222
  Serious: Yes (Death, Hospitalization)
  Sender: FDA-Public Use
  Company Number: None

PATIENT
  Sex: Female
  Weight: 86.2 kg

DRUGS (2)
  1. IDARUBICIN HCL [Suspect]
     Dosage: 24 MG
     Dates: end: 20110607
  2. TRETINOIN [Suspect]
     Dosage: 80 MG
     Dates: end: 20110608

REACTIONS (3)
  - ACUTE PROMYELOCYTIC LEUKAEMIA [None]
  - CONDITION AGGRAVATED [None]
  - MULTI-ORGAN FAILURE [None]
